FAERS Safety Report 7034358-4 (Version None)
Quarter: 2010Q4

REPORT INFORMATION
  Report Type: 
  Country: None (occurrence: None)
  Receive Date: 20101008
  Receipt Date: 20100929
  Transmission Date: 20110411
  Serious: Yes (Hospitalization)
  Sender: FDA-Public Use
  Company Number: PHHO2010AT13438

PATIENT
  Sex: Female

DRUGS (5)
  1. CGS 20267 T30748+TAB [Suspect]
     Indication: BREAST CANCER
     Dosage: 2.5 MG, QD
     Route: 048
     Dates: start: 20061229
  2. TEMESTA [Concomitant]
     Indication: SLEEP DISORDER
  3. TRANXILIUM [Concomitant]
     Indication: DEPRESSION
  4. PANTOPRAZOLE [Concomitant]
     Indication: DEPRESSION
  5. MAXI-KALZ [Concomitant]
     Indication: OSTEOPENIA

REACTIONS (2)
  - OEDEMA PERIPHERAL [None]
  - RHEUMATOID ARTHRITIS [None]
